FAERS Safety Report 14897179 (Version 3)
Quarter: 2019Q1

REPORT INFORMATION
  Report Type: Spontaneous
  Country: PT (occurrence: PT)
  Receive Date: 20180515
  Receipt Date: 20190228
  Transmission Date: 20190417
  Serious: Yes (Hospitalization, Other)
  Sender: FDA-Public Use
  Company Number: PT-BAXTER-2018BAX013764

PATIENT
  Age: 39 Year
  Sex: Male

DRUGS (11)
  1. GENTAMICIN. [Suspect]
     Active Substance: GENTAMICIN
     Indication: ENDOCARDITIS CANDIDA
     Dosage: UNK
     Route: 065
  2. TRUVADA [Concomitant]
     Active Substance: EMTRICITABINE\TENOFOVIR DISOPROXIL FUMARATE
     Indication: HIV INFECTION
     Dosage: UNK
     Route: 065
  3. VANCOMYCIN [Suspect]
     Active Substance: VANCOMYCIN
     Indication: ENDOCARDITIS
     Dosage: UNK
     Route: 065
  4. FLUCONAZOLE. [Concomitant]
     Active Substance: FLUCONAZOLE
     Indication: CANDIDA INFECTION
     Dosage: 400 MG, QD
     Route: 042
  5. EMTRICITABINE/TENOFOVIR DISOPROXIL [Concomitant]
     Active Substance: EMTRICITABINE\TENOFOVIR DISOPROXIL
     Indication: HIV INFECTION
     Dosage: UNK
     Route: 065
  6. FLUCONAZOL CLARIS 2 MG/ML SOLU??O PARA PERFUS?O [Suspect]
     Active Substance: FLUCONAZOLE
     Indication: PRODUCT USED FOR UNKNOWN INDICATION
     Route: 065
  7. CIPROFLOXACINA CLARIS 2 MG/ML SOLU??O PARA PERFUS?O [Suspect]
     Active Substance: CIPROFLOXACIN LACTATE
     Indication: ENDOCARDITIS CANDIDA
     Dosage: UNK
     Route: 065
  8. AMOXICILLIN, CLAVULANIC ACID [Suspect]
     Active Substance: AMOXICILLIN\CLAVULANIC ACID
     Indication: ENDOCARDITIS
     Dosage: UNK
     Route: 042
  9. LINEZOLID. [Concomitant]
     Active Substance: LINEZOLID
     Indication: NOSOCOMIAL INFECTION
     Dosage: UNK
     Route: 065
  10. VANCOMYCIN [Suspect]
     Active Substance: VANCOMYCIN
     Indication: ENDOCARDITIS CANDIDA
  11. AMPHOTERICIN B. [Concomitant]
     Active Substance: AMPHOTERICIN B
     Indication: CANDIDA INFECTION
     Dosage: UNK
     Route: 065

REACTIONS (8)
  - Pulmonary valve disease [Unknown]
  - Drug ineffective [Unknown]
  - Mitral valve incompetence [Unknown]
  - Condition aggravated [Recovered/Resolved]
  - Aortic valve disease [Unknown]
  - Nosocomial infection [Unknown]
  - Cardiac failure [Recovered/Resolved]
  - Endocarditis candida [Recovered/Resolved]
